FAERS Safety Report 4294116-0 (Version None)
Quarter: 2004Q1

REPORT INFORMATION
  Report Type: 
  Country: None (occurrence: None)
  Receive Date: 20040212
  Receipt Date: 20040203
  Transmission Date: 20041129
  Serious: Yes (Life-Threatening)
  Sender: FDA-Public Use
  Company Number: FLUV00304000327

PATIENT
  Age: 39 Year
  Sex: Male

DRUGS (7)
  1. LUVOX [Suspect]
     Indication: DEPRESSION
     Dosage: DAILY PO
     Route: 048
     Dates: end: 20040101
  2. LEVOTOMIN (LEVOMEPROMAZINE MALEATE) [Concomitant]
  3. DEPAS (ETIZOLAM) [Concomitant]
  4. AMOBAN (ZOPICLONE) [Concomitant]
  5. NITRAZEPAM [Concomitant]
  6. AMITRIPTYLINE HYDROCHLORIDE [Concomitant]
  7. LENDORM [Concomitant]

REACTIONS (3)
  - INAPPROPRIATE ANTIDIURETIC HORMONE SECRETION [None]
  - LIVER DISORDER [None]
  - RENAL DISORDER [None]
